FAERS Safety Report 23219430 (Version 1)
Quarter: 2023Q4

REPORT INFORMATION
  Report Type: Spontaneous
  Country: AT (occurrence: AT)
  Receive Date: 20231122
  Receipt Date: 20231122
  Transmission Date: 20240109
  Serious: Yes (Other)
  Sender: FDA-Public Use
  Company Number: AT-BAYER-2023A163571

PATIENT
  Sex: Male

DRUGS (1)
  1. FINERENONE [Suspect]
     Active Substance: FINERENONE
     Dosage: 10 MG, UNK

REACTIONS (2)
  - Hypokalaemia [None]
  - Glomerular filtration rate decreased [None]
